FAERS Safety Report 7630287-3 (Version None)
Quarter: 2011Q3

REPORT INFORMATION
  Report Type: 
  Country: None (occurrence: None)
  Receive Date: 20110722
  Receipt Date: 20110714
  Transmission Date: 20111222
  Serious: Yes (Other)
  Sender: FDA-Public Use
  Company Number: PHEH2009US13601

PATIENT
  Sex: Female

DRUGS (5)
  1. FENTANYL [Concomitant]
  2. ZOMETA [Suspect]
     Indication: MULTIPLE MYELOMA
     Dosage: UNK
  3. NORVASC [Concomitant]
  4. NEURONTIN [Concomitant]
  5. ENALAPRIL MALEATE [Concomitant]

REACTIONS (8)
  - OSTEONECROSIS OF JAW [None]
  - PAIN [None]
  - EXPOSED BONE IN JAW [None]
  - ANXIETY [None]
  - DISABILITY [None]
  - INJURY [None]
  - ANHEDONIA [None]
  - OSTEITIS [None]
